FAERS Safety Report 12974045 (Version 3)
Quarter: 2017Q1

REPORT INFORMATION
  Report Type: Spontaneous
  Country: US (occurrence: US)
  Receive Date: 20161124
  Receipt Date: 20170116
  Transmission Date: 20170428
  Serious: Yes (Death, Other)
  Sender: FDA-Public Use
  Company Number: US-009507513-1611USA010079

PATIENT
  Age: 73 Year
  Sex: Female

DRUGS (2)
  1. KEYTRUDA [Suspect]
     Active Substance: PEMBROLIZUMAB
     Indication: BREAST CANCER METASTATIC
     Dosage: 200 MG, Q3W
     Route: 042
     Dates: start: 20161021, end: 20161021
  2. PREDNISONE. [Concomitant]
     Active Substance: PREDNISONE
     Dosage: 5 MG DAILY
     Route: 048

REACTIONS (6)
  - Malignant neoplasm progression [Fatal]
  - Syncope [Unknown]
  - Drug ineffective [Unknown]
  - Abdominal pain [Unknown]
  - Product use issue [Unknown]
  - Diarrhoea [Unknown]

NARRATIVE: CASE EVENT DATE: 2016
